FAERS Safety Report 4383919-X (Version None)
Quarter: 2004Q2

REPORT INFORMATION
  Report Type: 
  Country: None (occurrence: None)
  Receive Date: 20040623
  Receipt Date: 20040623
  Transmission Date: 20050107
  Serious: Yes (Other)
  Sender: FDA-Public Use
  Company Number: None

PATIENT
  Age: 50 Year
  Sex: Female
  Weight: 59 kg

DRUGS (2)
  1. MAXIPIME [Suspect]
     Indication: PYELONEPHRITIS
     Dosage: IV Q 24 H
     Route: 042
     Dates: start: 20040515, end: 20040524
  2. GENTAMICIN [Suspect]
     Indication: URINARY TRACT INFECTION
     Dosage: IV Q 24 H
     Route: 042
     Dates: start: 20040515, end: 20040524

REACTIONS (1)
  - RASH GENERALISED [None]
